FAERS Safety Report 5050024-9 (Version None)
Quarter: 2006Q3

REPORT INFORMATION
  Report Type: 
  Country: None (occurrence: None)
  Receive Date: 20060713
  Receipt Date: 20060703
  Transmission Date: 20061208
  Serious: Yes (Other)
  Sender: FDA-Public Use
  Company Number: PHBS2006CL09956

PATIENT
  Age: 65 Year
  Sex: Male

DRUGS (3)
  1. TAREG D [Suspect]
     Indication: HYPERTENSION
     Dosage: VALS 160 MG/ HCT 12.5 MG/DAY
     Route: 048
  2. DILATREND [Concomitant]
  3. CEFALMIN [Concomitant]

REACTIONS (1)
  - BUNDLE BRANCH BLOCK [None]
